FAERS Safety Report 4616936-2 (Version None)
Quarter: 2005Q1

REPORT INFORMATION
  Report Type: 
  Country: None (occurrence: None)
  Receive Date: 20050321
  Receipt Date: 20050309
  Transmission Date: 20050727
  Serious: Yes (Hospitalization, Other)
  Sender: FDA-Public Use
  Company Number: 2005043290

PATIENT
  Age: 68 Year
  Sex: Male

DRUGS (4)
  1. AMLODIPINE [Suspect]
     Indication: ANGINA PECTORIS
     Dosage: 5 MG (5 MG, EVERY DAY), ORAL
     Route: 048
  2. SIMVASTATIN [Suspect]
     Indication: ANGINA PECTORIS
     Dosage: 20 MG (20 MG, EVERY DAY), ORAL
     Route: 048
  3. ATENOLOL [Concomitant]
  4. ASPIRIN PLUS C                   (ACETYLSALICYLIC ACID, ASCORBIC ACID) [Concomitant]

REACTIONS (8)
  - ACUTE CORONARY SYNDROME [None]
  - ARTHRALGIA [None]
  - INFUSION SITE INFECTION [None]
  - JOINT EFFUSION [None]
  - NAUSEA [None]
  - OEDEMA PERIPHERAL [None]
  - STAPHYLOCOCCAL SEPSIS [None]
  - THROMBOTIC THROMBOCYTOPENIC PURPURA [None]
